FAERS Safety Report 7908367-4 (Version None)
Quarter: 2011Q4

REPORT INFORMATION
  Report Type: 
  Country: None (occurrence: None)
  Receive Date: 20111111
  Receipt Date: 20111101
  Transmission Date: 20120403
  Serious: Yes (Other)
  Sender: FDA-Public Use
  Company Number: US-RANBAXY-2011US-50182

PATIENT

DRUGS (8)
  1. PAXIL [Suspect]
     Dosage: UNK
     Route: 065
     Dates: start: 20090921
  2. PAROXETINE HCL [Suspect]
     Dosage: UNK
     Route: 065
     Dates: start: 20090921
  3. PAROXETINE HCL [Suspect]
     Dosage: UNK, UNK
     Route: 065
     Dates: start: 20090921
  4. PAROXETINE HCL [Suspect]
     Indication: PRODUCT USED FOR UNKNOWN INDICATION
     Dosage: UNK
     Route: 065
  5. PAROXETINE HCL [Suspect]
     Indication: PRODUCT USED FOR UNKNOWN INDICATION
     Dosage: UNK, UNK
     Route: 065
  6. PAXIL [Suspect]
     Indication: PRODUCT USED FOR UNKNOWN INDICATION
     Dosage: UNK
     Route: 065
  7. LORAZEPAM [Suspect]
     Dosage: UNK
     Route: 065
     Dates: start: 20090921
  8. LORAZEPAM [Suspect]
     Indication: PRODUCT USED FOR UNKNOWN INDICATION
     Dosage: UNK, UNK
     Route: 065

REACTIONS (6)
  - INTENTIONAL SELF-INJURY [None]
  - SOMNAMBULISM [None]
  - DEPRESSION [None]
  - ANXIETY [None]
  - AKATHISIA [None]
  - HOMICIDE [None]
